FAERS Safety Report 17989528 (Version 1)
Quarter: 2020Q3

REPORT INFORMATION
  Report Type: Spontaneous
  Country: US (occurrence: US)
  Receive Date: 20200707
  Receipt Date: 20200707
  Transmission Date: 20201103
  Serious: No
  Sender: FDA-Public Use
  Company Number: US-BAYER-2020-128750

PATIENT
  Sex: Female

DRUGS (1)
  1. CLARITIN LIQUI?GELS [Suspect]
     Active Substance: LORATADINE
     Dosage: UNK
     Route: 048

REACTIONS (1)
  - Expired product administered [Unknown]
